FAERS Safety Report 6270844-2 (Version None)
Quarter: 2009Q3

REPORT INFORMATION
  Report Type: 
  Country: None (occurrence: None)
  Receive Date: 20090716
  Receipt Date: 20090716
  Transmission Date: 20100115
  Serious: Yes (Hospitalization)
  Sender: FDA-Public Use
  Company Number: US-B.I. PHARMACEUTICALS,INC./RIDGEFIELD-2009-BP-06502BP

PATIENT
  Sex: Male
  Weight: 76.2 kg

DRUGS (9)
  1. SPIRIVA [Suspect]
     Indication: CHRONIC OBSTRUCTIVE PULMONARY DISEASE
     Dosage: 18 MCG
     Route: 055
     Dates: start: 20080501, end: 20090401
  2. SPIRIVA [Suspect]
     Indication: NOCTURNAL DYSPNOEA
     Route: 055
     Dates: start: 20090526
  3. SPIRIVA [Suspect]
     Indication: PRODUCTIVE COUGH
  4. METFORMIN HCL [Concomitant]
  5. ASPIRIN [Concomitant]
  6. IMDUR [Concomitant]
  7. DIOVAN [Concomitant]
  8. COREG [Concomitant]
  9. PLAVIX [Concomitant]

REACTIONS (3)
  - DRY MOUTH [None]
  - INAPPROPRIATE SCHEDULE OF DRUG ADMINISTRATION [None]
  - MYOCARDIAL INFARCTION [None]
